FAERS Safety Report 6671911-1 (Version None)
Quarter: 2010Q2

REPORT INFORMATION
  Report Type: 
  Country: None (occurrence: None)
  Receive Date: 20100407
  Receipt Date: 20100331
  Transmission Date: 20101027
  Serious: Yes (Hospitalization)
  Sender: FDA-Public Use
  Company Number: JP-ASTRAZENECA-2010SE14268

PATIENT
  Age: 57 Year
  Sex: Female

DRUGS (5)
  1. XYLOCAINE VISCOUS [Suspect]
     Indication: LOCAL ANAESTHESIA
     Dosage: DOSE UNKNOWN
     Route: 049
     Dates: start: 20080101
  2. BUSCOPAN [Concomitant]
     Dosage: DOSE UNKNOWN
     Route: 065
     Dates: start: 20080101
  3. OLMESARTAN MEDOXOMIL [Concomitant]
     Dosage: DOSE UNKNOWN
     Route: 048
  4. SIMVASTATIN [Concomitant]
     Dosage: DOSE UNKNOWN
     Route: 048
  5. ASPIRIN [Concomitant]
     Dosage: DOSE UNKNOWN
     Route: 048

REACTIONS (2)
  - DYSPNOEA [None]
  - OEDEMA [None]
